FAERS Safety Report 20440938 (Version 3)
Quarter: 2022Q1

REPORT INFORMATION
  Report Type: Spontaneous
  Country: US (occurrence: US)
  Receive Date: 20220208
  Receipt Date: 20220307
  Transmission Date: 20220423
  Serious: Yes (Hospitalization, Other)
  Sender: FDA-Public Use
  Company Number: US-CELGENE-USA-20220201112

PATIENT
  Age: 83 Year
  Sex: Female
  Weight: 71.732 kg

DRUGS (1)
  1. REVLIMID [Suspect]
     Active Substance: LENALIDOMIDE
     Indication: Plasma cell myeloma
     Dosage: 25 MILLIGRAM
     Route: 048
     Dates: start: 20220113

REACTIONS (6)
  - Urinary hesitation [Recovering/Resolving]
  - Hypervolaemia [Recovering/Resolving]
  - Haemoglobin decreased [Recovering/Resolving]
  - Atrial fibrillation [Recovering/Resolving]
  - Peripheral swelling [Recovering/Resolving]
  - Weight decreased [Recovering/Resolving]

NARRATIVE: CASE EVENT DATE: 20220125
